FAERS Safety Report 19654828 (Version 1)
Quarter: 2021Q3

REPORT INFORMATION
  Report Type: Spontaneous
  Country: PL (occurrence: PL)
  Receive Date: 20210804
  Receipt Date: 20210804
  Transmission Date: 20211014
  Serious: Yes (Death, Life-Threatening, Hospitalization)
  Sender: FDA-Public Use
  Company Number: PL-TEVA-2021-PL-1938128

PATIENT
  Age: 35 Year
  Sex: Male

DRUGS (15)
  1. IVIG [Suspect]
     Active Substance: HUMAN IMMUNOGLOBULIN G
     Indication: PYODERMA GANGRENOSUM
     Dosage: 2 G/KG
     Route: 042
     Dates: start: 201912
  2. GENTAMICIN. [Concomitant]
     Active Substance: GENTAMICIN
     Indication: PYODERMA GANGRENOSUM
     Route: 061
     Dates: start: 2019
  3. CICLOSPORIN [Suspect]
     Active Substance: CYCLOSPORINE
     Indication: HAEMOPHAGOCYTIC LYMPHOHISTIOCYTOSIS
     Dosage: 3 MG/KG DAILY;
     Route: 065
     Dates: start: 202003
  4. PREDNISONE. [Concomitant]
     Active Substance: PREDNISONE
     Indication: PYODERMA GANGRENOSUM
     Route: 065
     Dates: start: 2019
  5. METHYLPREDNISOLONE. [Concomitant]
     Active Substance: METHYLPREDNISOLONE
     Indication: PYODERMA GANGRENOSUM
     Dosage: 3 X 500MG EVERY 4 WEEKS
     Route: 042
     Dates: start: 2019
  6. CICLOSPORIN [Suspect]
     Active Substance: CYCLOSPORINE
     Indication: HAEMOPHAGOCYTIC LYMPHOHISTIOCYTOSIS
     Dosage: DOSE DEPENDING ON ITS BLOOD LEVELS
     Route: 065
     Dates: start: 202001
  7. BETAMETHASONE. [Concomitant]
     Active Substance: BETAMETHASONE
     Indication: PYODERMA GANGRENOSUM
     Route: 061
     Dates: start: 2019
  8. CICLOSPORIN [Suspect]
     Active Substance: CYCLOSPORINE
     Indication: HAEMOPHAGOCYTIC LYMPHOHISTIOCYTOSIS
     Dosage: 4.2 MG/KG DAILY;
     Route: 065
     Dates: start: 2019
  9. ETOPOSIDE. [Suspect]
     Active Substance: ETOPOSIDE
     Indication: HAEMOPHAGOCYTIC LYMPHOHISTIOCYTOSIS
     Route: 042
     Dates: start: 202001, end: 2020
  10. ANAKINRA [Suspect]
     Active Substance: ANAKINRA
     Indication: PYODERMA GANGRENOSUM
     Dosage: 100 MILLIGRAM DAILY;
     Route: 058
     Dates: start: 202003
  11. PREDNISONE. [Concomitant]
     Active Substance: PREDNISONE
     Indication: PYODERMA GANGRENOSUM
     Dosage: .8 MG/KG DAILY; AS A FIRST?LINE THERAPY (5 MONTHS EARLIER)
     Route: 065
     Dates: start: 2019
  12. PREDNISONE. [Concomitant]
     Active Substance: PREDNISONE
     Indication: PYODERMA GANGRENOSUM
     Route: 065
     Dates: start: 202003
  13. PURILON GEL [Concomitant]
     Indication: PYODERMA GANGRENOSUM
     Route: 061
     Dates: start: 2019
  14. DEXAMETHASONE. [Suspect]
     Active Substance: DEXAMETHASONE
     Indication: HAEMOPHAGOCYTIC LYMPHOHISTIOCYTOSIS
     Dosage: 10 MG/M2 DAILY;
     Route: 048
     Dates: start: 202001
  15. PREDNISONE. [Concomitant]
     Active Substance: PREDNISONE
     Indication: PYODERMA GANGRENOSUM
     Dosage: AS A FIRST?LINE THERAPY (5 MONTHS EARLIER)
     Route: 065
     Dates: start: 2019

REACTIONS (6)
  - Neutropenia [Fatal]
  - Multiple organ dysfunction syndrome [Fatal]
  - Drug ineffective [Unknown]
  - Sepsis [Fatal]
  - Bacteraemia [Recovered/Resolved]
  - Off label use [Unknown]

NARRATIVE: CASE EVENT DATE: 201912
